FAERS Safety Report 12201969 (Version 1)
Quarter: 2016Q1

REPORT INFORMATION
  Report Type: Report from Study
  Country: AR (occurrence: AR)
  Receive Date: 20160322
  Receipt Date: 20160322
  Transmission Date: 20160526
  Serious: Yes (Other)
  Sender: FDA-Public Use
  Company Number: AR-BRISTOL-MYERS SQUIBB COMPANY-BMS-2015-022827

PATIENT
  Age: 33 Year
  Sex: Male
  Weight: 70 kg

DRUGS (1)
  1. BELATACEPT [Suspect]
     Active Substance: BELATACEPT
     Indication: RENAL TRANSPLANT
     Dosage: 350 MG, QMO
     Route: 042
     Dates: start: 20140530

REACTIONS (4)
  - Inguinal hernia [Unknown]
  - Pyrexia [Recovering/Resolving]
  - Gastrointestinal pain [Recovering/Resolving]
  - Vomiting [Recovering/Resolving]

NARRATIVE: CASE EVENT DATE: 20150405
